FAERS Safety Report 22594521 (Version 1)
Quarter: 2023Q2

REPORT INFORMATION
  Report Type: Spontaneous
  Country: MX (occurrence: MX)
  Receive Date: 20230613
  Receipt Date: 20230613
  Transmission Date: 20230722
  Serious: Yes (Other)
  Sender: FDA-Public Use
  Company Number: MX-BAYER-2023A082803

PATIENT
  Age: 43 Year
  Sex: Male

DRUGS (1)
  1. LAROTRECTINIB [Suspect]
     Active Substance: LAROTRECTINIB
     Indication: Glioblastoma multiforme
     Dosage: 100 MG, BID
     Route: 048
     Dates: start: 20230207

REACTIONS (1)
  - Glioblastoma multiforme [None]

NARRATIVE: CASE EVENT DATE: 20230501
